FAERS Safety Report 7588855-3 (Version None)
Quarter: 2011Q3

REPORT INFORMATION
  Report Type: 
  Country: None (occurrence: None)
  Receive Date: 20110705
  Receipt Date: 20110624
  Transmission Date: 20111222
  Serious: Yes (Other)
  Sender: FDA-Public Use
  Company Number: FR-TEVA-260949ISR

PATIENT
  Sex: Female

DRUGS (6)
  1. TRIMETAZIDINE HYDROCHLORIDE [Concomitant]
     Indication: CARDIOVASCULAR DISORDER
     Dosage: 70 MILLIGRAM;
     Route: 048
     Dates: start: 20100101
  2. ACETYLSALICYLATE LYSINE [Concomitant]
     Indication: CARDIOVASCULAR DISORDER
     Dosage: 75 MILLIGRAM;
     Route: 048
     Dates: start: 20100101
  3. ROSUVASTATIN [Concomitant]
     Indication: HYPERCHOLESTEROLAEMIA
     Dosage: 5 MILLIGRAM;
     Route: 048
  4. CANDESARTAN CILEXETIL [Concomitant]
     Indication: CARDIOVASCULAR DISORDER
     Dosage: 8 MILLIGRAM;
     Route: 048
  5. AZILECT [Suspect]
     Indication: PARKINSON'S DISEASE
     Route: 048
     Dates: start: 20100625, end: 20101217
  6. AZILECT [Suspect]
     Route: 048
     Dates: start: 20110117

REACTIONS (1)
  - PAIN IN EXTREMITY [None]
